FAERS Safety Report 4872683-3 (Version None)
Quarter: 2006Q1

REPORT INFORMATION
  Report Type: 
  Country: None (occurrence: None)
  Receive Date: 20060103
  Receipt Date: 20051227
  Transmission Date: 20060701
  Serious: Yes (Hospitalization)
  Sender: FDA-Public Use
  Company Number: STA-AE-05-035

PATIENT
  Age: 74 Year
  Sex: Male

DRUGS (2)
  1. DILTIAZEM HCL [Suspect]
     Indication: ATRIAL FIBRILLATION
     Dosage: 480 MG PER DAY
  2. AMIODARONE [Concomitant]

REACTIONS (3)
  - ABDOMINAL DISTENSION [None]
  - BOWEL SOUNDS ABNORMAL [None]
  - GASTROINTESTINAL HYPOMOTILITY [None]
